FAERS Safety Report 24090862 (Version 1)
Quarter: 2024Q3

REPORT INFORMATION
  Report Type: Report from Study
  Country: US (occurrence: US)
  Receive Date: 20240715
  Receipt Date: 20240715
  Transmission Date: 20241017
  Serious: Yes (Hospitalization)
  Sender: GILEAD
  Company Number: US-GILEAD-2024-0680571

PATIENT
  Sex: Female

DRUGS (11)
  1. AZTREONAM LYSINE [Suspect]
     Active Substance: AZTREONAM LYSINE
     Indication: Cystic fibrosis
     Dosage: INHALE 75 MG 3 TIMES DAILY FOR 28 DAYS ON THEN 28 DAYS OFF
     Route: 055
  2. AZTREONAM LYSINE [Suspect]
     Active Substance: AZTREONAM LYSINE
     Indication: Pseudomonas infection
  3. OXCARBAZEPINE [Concomitant]
     Active Substance: OXCARBAZEPINE
  4. CLOBAZAM [Concomitant]
     Active Substance: CLOBAZAM
  5. POLY VI SOL [ASCORBIC ACID;COLECALCIFEROL;NICOTINAMIDE;RETINOL;RIBOFLA [Concomitant]
  6. TOBRAMYCIN [Concomitant]
     Active Substance: TOBRAMYCIN\TOBRAMYCIN SULFATE
  7. VIMPAT [Concomitant]
     Active Substance: LACOSAMIDE
  8. FLONASE ALLERGY RELIEF [Concomitant]
     Active Substance: FLUTICASONE PROPIONATE
  9. CLONIDINE [Concomitant]
     Active Substance: CLONIDINE
  10. LEVOTHYROXINE [Concomitant]
     Active Substance: LEVOTHYROXINE\LEVOTHYROXINE SODIUM
  11. MELATONIN [Concomitant]
     Active Substance: MELATONIN

REACTIONS (1)
  - Urinary tract infection [Unknown]
